FAERS Safety Report 4437937-3 (Version None)
Quarter: 2004Q3

REPORT INFORMATION
  Report Type: 
  Country: None (occurrence: None)
  Receive Date: 20040831
  Receipt Date: 20040823
  Transmission Date: 20050211
  Serious: Yes (Other)
  Sender: FDA-Public Use
  Company Number: US013192

PATIENT
  Age: 55 Year
  Sex: Female
  Weight: 88.2 kg

DRUGS (15)
  1. ALBUTEROL [Suspect]
     Indication: ASTHMA
     Route: 055
     Dates: start: 20040220
  2. PROVIGIL [Suspect]
     Dosage: 100MG PER DAY
     Route: 048
     Dates: start: 20031101
  3. ACIPHEX [Concomitant]
  4. VIOKASE [Concomitant]
  5. LIPITOR [Concomitant]
  6. GLUCOSAMINE SULFATE WITH CHONDROITIN (HERBAL) [Concomitant]
  7. MULTI-VITAMIN [Concomitant]
  8. ESTER-C [Concomitant]
  9. IPRATROPIUM BROMIDE [Concomitant]
  10. LYSINE [Concomitant]
  11. UNSPECIFIED MEDICATION [Concomitant]
  12. LIBRIUM [Concomitant]
  13. DARVOCET-N 100 [Concomitant]
  14. NEURONTIN [Concomitant]
  15. PAXIL [Concomitant]

REACTIONS (8)
  - ASTHMA [None]
  - CHEST PAIN [None]
  - CHOKING SENSATION [None]
  - COUGH [None]
  - DRUG INTERACTION [None]
  - FEELING JITTERY [None]
  - PAIN EXACERBATED [None]
  - SOMNOLENCE [None]
